FAERS Safety Report 4418498-1 (Version None)
Quarter: 2004Q3

REPORT INFORMATION
  Report Type: 
  Country: None (occurrence: None)
  Receive Date: 20040809
  Receipt Date: 20040513
  Transmission Date: 20050211
  Serious: No
  Sender: FDA-Public Use
  Company Number: US-GLAXOSMITHKLINE-A0510747A

PATIENT
  Sex: Female

DRUGS (3)
  1. PAXIL CR [Suspect]
     Dosage: 25MG PER DAY
     Route: 048
  2. PAXIL [Suspect]
  3. ORAL CONTRACEPTIVES [Concomitant]

REACTIONS (5)
  - ABNORMAL DREAMS [None]
  - AFFECT LABILITY [None]
  - DIZZINESS [None]
  - NIGHT SWEATS [None]
  - PARAESTHESIA [None]
